FAERS Safety Report 8438890-8 (Version None)
Quarter: 2012Q2

REPORT INFORMATION
  Report Type: 
  Country: None (occurrence: None)
  Receive Date: 20120323
  Receipt Date: 20110616
  Transmission Date: 20120825
  Serious: Yes (Other)
  Sender: FDA-Public Use
  Company Number: 163-21880-11062660

PATIENT
  Age: 48 Year
  Sex: Female

DRUGS (5)
  1. DEXAMETHASONE [Concomitant]
  2. IBUPROFEN [Concomitant]
  3. LENALIDOMIDE [Suspect]
     Dosage: 25;10 MG, DAILY FOR 21 DAYS, EVERY 28, PO
     Route: 048
     Dates: start: 20100801, end: 20101201
  4. LENALIDOMIDE [Suspect]
     Dosage: 25;10 MG, DAILY FOR 21 DAYS, EVERY 28, PO
     Route: 048
     Dates: start: 20110501, end: 20110519
  5. ACYCLOVIR [Concomitant]

REACTIONS (1)
  - RASH ERYTHEMATOUS [None]
